FAERS Safety Report 11138886 (Version 1)
Quarter: 2015Q2

REPORT INFORMATION
  Report Type: Spontaneous
  Country: US (occurrence: None)
  Receive Date: 20150526
  Receipt Date: 20150526
  Transmission Date: 20150821
  Serious: No
  Sender: FDA-Public Use
  Company Number: None

PATIENT
  Age: 51 Year
  Sex: Female

DRUGS (4)
  1. AMPYRA [Suspect]
     Active Substance: DALFAMPRIDINE
     Indication: MULTIPLE SCLEROSIS
     Route: 048
     Dates: start: 201307
  2. CHOLECALCIFEROL [Concomitant]
     Active Substance: CHOLECALCIFEROL
  3. CHLORHEXIDINE GLUCONATE (PERIDEX) [Concomitant]
  4. VITAMIN D3 (VITAMIN D3) [Concomitant]

REACTIONS (1)
  - Full blood count abnormal [None]

NARRATIVE: CASE EVENT DATE: 20150214
